FAERS Safety Report 9158218 (Version 1)
Quarter: 2013Q1

REPORT INFORMATION
  Report Type: Spontaneous
  Country: CN (occurrence: CN)
  Receive Date: 20130312
  Receipt Date: 20130312
  Transmission Date: 20140127
  Serious: Yes (Other)
  Sender: FDA-Public Use
  Company Number: CN-ROCHE-1193464

PATIENT
  Sex: Male
  Weight: 72 kg

DRUGS (2)
  1. XELODA [Suspect]
     Indication: COLON CANCER
     Route: 048
     Dates: start: 20121229, end: 20130124
  2. XELODA [Suspect]
     Route: 048
     Dates: start: 20121220, end: 20130130

REACTIONS (4)
  - Metastases to liver [Unknown]
  - White blood cell count decreased [Not Recovered/Not Resolved]
  - Platelet count decreased [Not Recovered/Not Resolved]
  - Tumour marker increased [Unknown]
